FAERS Safety Report 25603108 (Version 1)
Quarter: 2025Q3

REPORT INFORMATION
  Report Type: Spontaneous
  Country: TR (occurrence: TR)
  Receive Date: 20250724
  Receipt Date: 20250724
  Transmission Date: 20251021
  Serious: Yes (Death, Other)
  Sender: AZURITY PHARMACEUTICALS
  Company Number: TR-AZURITY PHARMACEUTICALS, INC.-AZR202506-002106

PATIENT
  Age: 34 Year
  Sex: Female

DRUGS (12)
  1. METHOTREXATE [Suspect]
     Active Substance: METHOTREXATE
     Indication: Acute lymphocytic leukaemia
     Route: 037
  2. METHOTREXATE [Suspect]
     Active Substance: METHOTREXATE
     Dosage: 1000 MILLIGRAM/SQ. METER, DAILY
     Route: 065
     Dates: start: 20250106
  3. METHOTREXATE [Suspect]
     Active Substance: METHOTREXATE
     Route: 037
     Dates: start: 202501
  4. CYTARABINE [Concomitant]
     Active Substance: CYTARABINE
     Indication: Acute lymphocytic leukaemia
     Route: 065
  5. CYTARABINE [Concomitant]
     Active Substance: CYTARABINE
     Route: 065
     Dates: start: 20250106
  6. CYTARABINE [Concomitant]
     Active Substance: CYTARABINE
     Route: 065
     Dates: start: 202501
  7. CYCLOPHOSPHAMIDE [Concomitant]
     Active Substance: CYCLOPHOSPHAMIDE
     Indication: Acute lymphocytic leukaemia
     Route: 065
  8. VINCRISTINE [Concomitant]
     Active Substance: VINCRISTINE
     Indication: Acute lymphocytic leukaemia
     Dosage: 2 MILLIGRAM, DAILY
     Route: 065
  9. ADRIAMYCIN [Concomitant]
     Active Substance: DOXORUBICIN HYDROCHLORIDE
     Indication: Acute lymphocytic leukaemia
     Dosage: 50 MILLIGRAM/SQ. METER, DAILY
     Route: 065
  10. Decort [Concomitant]
     Indication: Acute lymphocytic leukaemia
     Dosage: 40 MILLIGRAM, DAILY
     Route: 065
  11. PREDNISOLONE [Concomitant]
     Active Substance: PREDNISOLONE
     Indication: Acute lymphocytic leukaemia
     Route: 065
     Dates: start: 20250106
  12. PREDNISOLONE [Concomitant]
     Active Substance: PREDNISOLONE
     Route: 065
     Dates: start: 202501

REACTIONS (4)
  - Multiple organ dysfunction syndrome [Fatal]
  - Cardiac arrest [Unknown]
  - Toxic epidermal necrolysis [Fatal]
  - Neutropenia [Unknown]

NARRATIVE: CASE EVENT DATE: 20250101
